FAERS Safety Report 6971578-9 (Version None)
Quarter: 2010Q3

REPORT INFORMATION
  Report Type: 
  Country: None (occurrence: None)
  Receive Date: 20100908
  Receipt Date: 20100827
  Transmission Date: 20110219
  Serious: No
  Sender: FDA-Public Use
  Company Number: US-ROXANE LABORATORIES, INC.-2010-RO-01150RO

PATIENT
  Sex: Male

DRUGS (1)
  1. BUTORPHANOL TARTRATE [Suspect]

REACTIONS (5)
  - DIZZINESS [None]
  - MEDICATION RESIDUE [None]
  - MUSCULAR WEAKNESS [None]
  - PRODUCT PACKAGING ISSUE [None]
  - SKIN INJURY [None]
